FAERS Safety Report 24348531 (Version 2)
Quarter: 2024Q3

REPORT INFORMATION
  Report Type: Spontaneous
  Country: IR (occurrence: IR)
  Receive Date: 20240923
  Receipt Date: 20240924
  Transmission Date: 20241016
  Serious: Yes (Life-Threatening, Hospitalization, Other)
  Sender: MSN LABORATORIES
  Company Number: IR-MSNLABS-2024MSNLIT01971

PATIENT

DRUGS (13)
  1. ROSUVASTATIN [Suspect]
     Active Substance: ROSUVASTATIN\ROSUVASTATIN CALCIUM
     Indication: Diabetic nephropathy
     Route: 065
  2. METFORMIN\SITAGLIPTIN [Suspect]
     Active Substance: METFORMIN\SITAGLIPTIN
     Indication: Diabetes mellitus
     Route: 048
  3. Synoripa [Concomitant]
     Indication: Diabetes mellitus
     Dosage: DAILY
     Route: 048
  4. NITROGLYCERIN [Concomitant]
     Active Substance: NITROGLYCERIN
     Indication: Product used for unknown indication
     Dosage: TWICE A DAY
     Route: 065
  5. ASPIRIN [Concomitant]
     Active Substance: ASPIRIN
     Indication: Product used for unknown indication
     Dosage: DAILY
     Route: 065
  6. Valzomix [Concomitant]
     Indication: Diabetic nephropathy
     Dosage: DAILY
     Route: 065
  7. GABAPENTIN [Concomitant]
     Active Substance: GABAPENTIN
     Indication: Product used for unknown indication
     Route: 065
  8. CLOPIDOGREL [Concomitant]
     Active Substance: CLOPIDOGREL BISULFATE
     Indication: Product used for unknown indication
     Dosage: DAILY
     Route: 065
  9. INDAPAMIDE [Concomitant]
     Active Substance: INDAPAMIDE
     Indication: Product used for unknown indication
     Dosage: DAILY
     Route: 065
  10. HYDROCHLOROTHIAZIDE [Concomitant]
     Active Substance: HYDROCHLOROTHIAZIDE
     Indication: Product used for unknown indication
     Dosage: DAILY
     Route: 065
  11. ESCITALOPRAM [Concomitant]
     Active Substance: ESCITALOPRAM OXALATE
     Indication: Product used for unknown indication
     Dosage: DAILY
     Route: 065
  12. PANTOPRAZOLE [Concomitant]
     Active Substance: PANTOPRAZOLE
     Indication: Product used for unknown indication
     Dosage: DAILY
     Route: 065
  13. LANTUS [Concomitant]
     Active Substance: INSULIN GLARGINE
     Indication: Diabetes mellitus
     Dosage: DAILY
     Route: 065

REACTIONS (3)
  - Drug interaction [Recovered/Resolved]
  - Acute kidney injury [Recovering/Resolving]
  - Rhabdomyolysis [Recovering/Resolving]
